FAERS Safety Report 7921465-4 (Version None)
Quarter: 2011Q4

REPORT INFORMATION
  Report Type: 
  Country: None (occurrence: None)
  Receive Date: 20111117
  Receipt Date: 20101119
  Transmission Date: 20120403
  Serious: No
  Sender: FDA-Public Use
  Company Number: US-MYLANLABS-2010S1021315

PATIENT
  Sex: Female

DRUGS (1)
  1. NADOLOL [Suspect]
     Route: 048

REACTIONS (3)
  - DYSPHAGIA [None]
  - OROPHARYNGEAL PAIN [None]
  - OESOPHAGITIS [None]
